FAERS Safety Report 9896000 (Version 2)
Quarter: 2014Q1

REPORT INFORMATION
  Report Type: Spontaneous
  Country: US (occurrence: US)
  Receive Date: 20140213
  Receipt Date: 20140213
  Transmission Date: 20141002
  Serious: No
  Sender: FDA-Public Use
  Company Number: US-BRISTOL-MYERS SQUIBB COMPANY-18779058

PATIENT
  Age: 60 Year
  Sex: Male
  Weight: 82.54 kg

DRUGS (1)
  1. ABATACEPT SUBQ INJECTION 125MG/ML [Suspect]
     Indication: RHEUMATOID ARTHRITIS
     Dosage: 1DF=125MG/ML?ON INTRAVENOUS ORENCIA:11-FEB-2013 TO 11-MAR-13.
     Route: 058
     Dates: start: 201304

REACTIONS (2)
  - Medication error [Unknown]
  - Laceration [Unknown]
